FAERS Safety Report 6131720-9 (Version None)
Quarter: 2009Q1

REPORT INFORMATION
  Report Type: 
  Country: None (occurrence: None)
  Receive Date: 20090325
  Receipt Date: 20090313
  Transmission Date: 20090719
  Serious: Yes (Other)
  Sender: FDA-Public Use
  Company Number: CN-ROCHE-621493

PATIENT

DRUGS (6)
  1. MYCOPHENOLATE MOFETIL [Suspect]
     Route: 065
  2. PEG-INTERFERON ALFA 2A (RO 25-8310) [Suspect]
     Indication: HEPATITIS C
     Route: 058
  3. PEG-INTERFERON ALFA 2A (RO 25-8310) [Suspect]
     Dosage: DOSE REPORTED AS REDUCED TO HALF INITIAL DOSE.
     Route: 058
  4. TACROLIMUS [Suspect]
     Route: 065
  5. RIBAVIRIN [Suspect]
     Indication: HEPATITIS C
     Route: 048
  6. RIBAVIRIN [Suspect]
     Dosage: DOSE REPORTED AS REDUCED TO HALF INITIAL DOSE.
     Route: 048

REACTIONS (4)
  - HAEMOGLOBIN DECREASED [None]
  - HEPATITIS C [None]
  - TRANSPLANT REJECTION [None]
  - WHITE BLOOD CELL COUNT DECREASED [None]
